FAERS Safety Report 6242466-0 (Version None)
Quarter: 2009Q2

REPORT INFORMATION
  Report Type: 
  Country: None (occurrence: None)
  Receive Date: 20090622
  Receipt Date: 20090622
  Transmission Date: 20091009
  Serious: Yes (Other)
  Sender: FDA-Public Use
  Company Number: None

PATIENT
  Sex: Male
  Weight: 96.1626 kg

DRUGS (2)
  1. TOVIAZ [Suspect]
     Dosage: 4 MG 1 PO
     Route: 048
     Dates: start: 20090613, end: 20090613
  2. TOVIAZ [Suspect]
     Dosage: 8 MG 1 PO
     Route: 048
     Dates: start: 20090616, end: 20090616

REACTIONS (2)
  - DYSURIA [None]
  - URINARY RETENTION [None]
